FAERS Safety Report 16309979 (Version 1)
Quarter: 2019Q2

REPORT INFORMATION
  Report Type: Report from Study
  Country: FR (occurrence: FR)
  Receive Date: 20190514
  Receipt Date: 20190514
  Transmission Date: 20190711
  Serious: Yes (Hospitalization, Other)
  Sender: FDA-Public Use
  Company Number: FR-SEATTLE GENETICS-2017SGN00605

PATIENT
  Age: 24 Year
  Sex: Male
  Weight: 85 kg

DRUGS (9)
  1. VINORELBINE [Concomitant]
     Active Substance: VINORELBINE\VINORELBINE TARTRATE
     Dosage: UNK
     Route: 065
  2. GEMCITABINE [Concomitant]
     Active Substance: GEMCITABINE\GEMCITABINE HYDROCHLORIDE
     Dosage: UNK
     Route: 065
  3. BRENTUXIMAB VEDOTIN-MPI [Suspect]
     Active Substance: BRENTUXIMAB VEDOTIN
     Dosage: 150 MG, UNK
     Route: 042
     Dates: start: 20170329, end: 20170908
  4. BRENTUXIMAB VEDOTIN-MPI [Suspect]
     Active Substance: BRENTUXIMAB VEDOTIN
     Indication: HODGKIN^S DISEASE
     Dosage: 150 MG, UNK
     Route: 042
     Dates: start: 20161006, end: 20161220
  5. DOXORUBICIN [Concomitant]
     Active Substance: DOXORUBICIN
     Dosage: UNK
     Route: 065
  6. BRENTUXIMAB VEDOTIN-MPI [Suspect]
     Active Substance: BRENTUXIMAB VEDOTIN
     Dosage: 135 UNK, UNK
     Route: 042
     Dates: start: 20170720
  7. VINORELBINE [Concomitant]
     Active Substance: VINORELBINE\VINORELBINE TARTRATE
     Dosage: UNK
     Route: 065
  8. GEMCITABINE [Concomitant]
     Active Substance: GEMCITABINE\GEMCITABINE HYDROCHLORIDE
     Dosage: UNK
     Route: 065
  9. DOXORUBICIN [Concomitant]
     Active Substance: DOXORUBICIN
     Dosage: UNK
     Route: 065

REACTIONS (24)
  - Infection [Recovered/Resolved]
  - Diarrhoea [Recovered/Resolved]
  - Pyrexia [Recovered/Resolved]
  - Tremor [Unknown]
  - Abdominal pain upper [Unknown]
  - Nausea [Recovered/Resolved]
  - Neuropathy peripheral [Not Recovered/Not Resolved]
  - Anxiety [Unknown]
  - Neutropenia [Not Recovered/Not Resolved]
  - Muscle spasms [Recovered/Resolved]
  - Adverse event [Unknown]
  - Headache [Unknown]
  - Anaemia [Unknown]
  - Fatigue [Not Recovered/Not Resolved]
  - Abdominal pain [Recovered/Resolved]
  - Dysuria [Not Recovered/Not Resolved]
  - Cough [Recovered/Resolved]
  - Weight increased [Unknown]
  - Weight decreased [Unknown]
  - Vomiting [Recovered/Resolved]
  - Myalgia [Not Recovered/Not Resolved]
  - Motor dysfunction [Recovered/Resolved]
  - Hepatocellular injury [Recovered/Resolved]
  - Off label use [Unknown]

NARRATIVE: CASE EVENT DATE: 20161020
